FAERS Safety Report 15883445 (Version 2)
Quarter: 2019Q2

REPORT INFORMATION
  Report Type: Spontaneous
  Country: IT (occurrence: IT)
  Receive Date: 20190129
  Receipt Date: 20190501
  Transmission Date: 20190711
  Serious: Yes (Other)
  Sender: FDA-Public Use
  Company Number: IT-ACCORD-103851

PATIENT
  Age: 88 Year
  Sex: Female
  Weight: 90 kg

DRUGS (1)
  1. QUETIAPINE ACCORD [Suspect]
     Active Substance: QUETIAPINE
     Indication: SENILE DEMENTIA
     Dosage: STRENGTH:50 MG

REACTIONS (6)
  - Delirium [Unknown]
  - Off label use [Unknown]
  - Insomnia [Unknown]
  - Restlessness [Unknown]
  - Hallucination [Unknown]
  - Therapy non-responder [Unknown]
